FAERS Safety Report 5414254-6 (Version None)
Quarter: 2007Q3

REPORT INFORMATION
  Report Type: 
  Country: None (occurrence: None)
  Receive Date: 20070713
  Receipt Date: 20070215
  Transmission Date: 20080115
  Serious: Yes (Other)
  Sender: FDA-Public Use
  Company Number: US-JNJFOC-20070204453

PATIENT
  Age: 24 Year
  Sex: Female
  Weight: 54.8852 kg

DRUGS (3)
  1. ORTHO EVRA [Suspect]
     Indication: CONTRACEPTION
     Dosage: 1 DOSE(S), 1 IN 1 WEEK, TRANSDERMAL
     Route: 062
     Dates: start: 20050201, end: 20070101
  2. ORTHO EVRA [Suspect]
     Indication: VAGINAL HAEMORRHAGE
     Dosage: 1 DOSE(S), 1 IN 1 WEEK, TRANSDERMAL
     Route: 062
     Dates: start: 20050201, end: 20070101
  3. ZITHROMAX [Concomitant]

REACTIONS (7)
  - DRUG EXPOSURE DURING PREGNANCY [None]
  - HEADACHE [None]
  - INAPPROPRIATE SCHEDULE OF DRUG ADMINISTRATION [None]
  - METRORRHAGIA [None]
  - NAUSEA [None]
  - PREGNANCY WITH CONTRACEPTIVE PATCH [None]
  - SINUSITIS [None]
